FAERS Safety Report 14438700 (Version 1)
Quarter: 2018Q1

REPORT INFORMATION
  Report Type: Spontaneous
  Country: US (occurrence: US)
  Receive Date: 20180125
  Receipt Date: 20180125
  Transmission Date: 20180509
  Serious: No
  Sender: FDA-Public Use
  Company Number: US-PFIZER INC-2018030187

PATIENT
  Age: 62 Year
  Sex: Female

DRUGS (2)
  1. LYRICA [Suspect]
     Active Substance: PREGABALIN
     Dosage: UNK (TAPERED HER DOSE FOR 2 MONTHS AND FINALLY HAD TO GO BACK ON THE MEDICATION)
  2. LYRICA [Suspect]
     Active Substance: PREGABALIN
     Dosage: UNK
     Dates: start: 2006, end: 2013

REACTIONS (8)
  - Headache [Unknown]
  - Intentional product misuse [Unknown]
  - Weight decreased [Unknown]
  - Anxiety [Unknown]
  - Nausea [Unknown]
  - Diarrhoea [Unknown]
  - Impaired work ability [Unknown]
  - Insomnia [Unknown]

NARRATIVE: CASE EVENT DATE: 2013
